FAERS Safety Report 4705439-2 (Version None)
Quarter: 2005Q2

REPORT INFORMATION
  Report Type: 
  Country: None (occurrence: None)
  Receive Date: 20050630
  Receipt Date: 20050630
  Transmission Date: 20051028
  Serious: No
  Sender: FDA-Public Use
  Company Number: None

PATIENT
  Age: 43 Year
  Sex: Female
  Weight: 60.782 kg

DRUGS (2)
  1. FENTANYL [Suspect]
     Indication: ABDOMINAL PAIN
     Dosage: 75 MCG Q 72 HRS
  2. FENTANYL [Suspect]
     Indication: ADHESION
     Dosage: 75 MCG Q 72 HRS

REACTIONS (2)
  - DRUG EFFECT DECREASED [None]
  - THERAPEUTIC RESPONSE UNEXPECTED [None]
